FAERS Safety Report 6944513-7 (Version None)
Quarter: 2010Q3

REPORT INFORMATION
  Report Type: 
  Country: None (occurrence: None)
  Receive Date: 20100827
  Receipt Date: 20100819
  Transmission Date: 20110219
  Serious: Yes (Other)
  Sender: FDA-Public Use
  Company Number: US-PFIZER INC-2010105165

PATIENT
  Sex: Female

DRUGS (5)
  1. GLIBENCLAMIDE [Suspect]
     Dosage: UNK
  2. METFORMIN HCL [Suspect]
     Dosage: UNK
  3. AZITHROMYCIN [Suspect]
     Dosage: UNK
  4. IRON [Suspect]
     Dosage: UNK
  5. PROTONIX [Suspect]
     Dosage: UNK

REACTIONS (10)
  - ANAEMIA [None]
  - BODY TEMPERATURE INCREASED [None]
  - CHRONIC MYELOID LEUKAEMIA [None]
  - DISCOMFORT [None]
  - GASTROINTESTINAL DISORDER [None]
  - GASTROINTESTINAL HAEMORRHAGE [None]
  - GENERAL PHYSICAL HEALTH DETERIORATION [None]
  - PLATELET COUNT DECREASED [None]
  - UMBILICAL HERNIA [None]
  - WHITE BLOOD CELL COUNT INCREASED [None]
